FAERS Safety Report 9397884 (Version 4)
Quarter: 2013Q3

REPORT INFORMATION
  Report Type: Report from Study
  Country: DE (occurrence: DE)
  Receive Date: 20130712
  Receipt Date: 20130910
  Transmission Date: 20140515
  Serious: Yes (Death, Life-Threatening)
  Sender: FDA-Public Use
  Company Number: DE-PFIZER INC-2013201111

PATIENT
  Age: 51 Year
  Sex: Female
  Weight: 58 kg

DRUGS (19)
  1. GEMTUZUMAB OZOGAMICIN [Suspect]
     Indication: ACUTE MYELOID LEUKAEMIA
     Dosage: 4.9 MG, UNK
     Dates: start: 20130619, end: 20130619
  2. IDARUBICIN HCL [Suspect]
     Indication: ACUTE MYELOID LEUKAEMIA
     Dosage: 19.7 MG, UNK
     Dates: start: 20130617, end: 20130617
  3. IDARUBICIN HCL [Suspect]
     Dosage: 19.7 MG, UNK
     Dates: start: 20130619, end: 20130619
  4. IDARUBICIN HCL [Suspect]
     Dosage: 19.7 MG, UNK
     Dates: start: 20130621, end: 20130621
  5. CYTARABINE [Suspect]
     Indication: ACUTE MYELOID LEUKAEMIA
     Dosage: 164 MG, UNK
     Dates: start: 20130617, end: 20130623
  6. ETOPOSIDE [Suspect]
     Indication: ACUTE MYELOID LEUKAEMIA
     Dosage: 164 MG, UNK
     Dates: start: 20130617, end: 20130619
  7. ATRA [Concomitant]
     Indication: ACUTE MYELOID LEUKAEMIA
     Dosage: 70 MG, UNK
     Dates: start: 20130622, end: 20130624
  8. ATRA [Concomitant]
     Dosage: 20 MG, UNK
     Dates: start: 20130628, end: 20130628
  9. ATRA [Concomitant]
     Dosage: 30 MG, UNK
     Dates: start: 20130625, end: 20130703
  10. AMBISONE [Concomitant]
     Indication: NEUTROPENIA
     Dosage: 50 MG, UNK
     Route: 042
     Dates: start: 20130624, end: 20130703
  11. BUSCOPAN [Concomitant]
     Indication: NEUTROPENIC COLITIS
     Dosage: 20 MG, 1-1-2
     Route: 042
     Dates: start: 20130622, end: 20130622
  12. MEROPENEM [Concomitant]
     Indication: NEUTROPENIC COLITIS
     Dosage: 1 G, 1-1-1
     Route: 042
     Dates: start: 20130624, end: 20130703
  13. SODIUM CHLORIDE [Concomitant]
     Indication: NUTRITIONAL SUPPLEMENTATION
     Dosage: 0.9 %, 1000 ML, 0-1-1
     Route: 042
     Dates: start: 20130625, end: 20130630
  14. RINGER ^BIOSEDRA^ [Concomitant]
     Indication: NUTRITIONAL SUPPLEMENTATION
     Dosage: 1000 ML, 0-1-0
     Route: 042
     Dates: start: 20130623, end: 20130629
  15. NOVAMINOSULFON [Concomitant]
     Indication: ABDOMINAL PAIN
     Dosage: 1 G, AS NEEDED
     Route: 042
     Dates: start: 20130622, end: 20130702
  16. NOXAFIL [Concomitant]
     Indication: NEUTROPENIA
     Dosage: 40 MG, 1-0-0
     Route: 042
     Dates: start: 20130624
  17. PARACETAMOL-RATIOPHARM [Concomitant]
     Indication: FEBRILE NEUTROPENIA
     Dosage: 1000 MG, AS NEEDED
     Route: 042
     Dates: start: 20130624, end: 20130630
  18. NUTRIFLEX [Concomitant]
     Indication: PARENTERAL NUTRITION
     Dosage: 1875 ML, 0-1-0
     Route: 042
     Dates: start: 20130623, end: 20130627
  19. VOMEX A [Concomitant]
     Indication: NEUTROPENIC COLITIS
     Dosage: 62 MG, 0-2-0
     Route: 042
     Dates: start: 20130623, end: 20130626

REACTIONS (1)
  - Neutropenic colitis [Fatal]
